FAERS Safety Report 16613100 (Version 1)
Quarter: 2019Q3

REPORT INFORMATION
  Report Type: Spontaneous
  Country: US (occurrence: US)
  Receive Date: 20190722
  Receipt Date: 20190722
  Transmission Date: 20191004
  Serious: Yes (Hospitalization)
  Sender: FDA-Public Use
  Company Number: None

PATIENT
  Age: 58 Year
  Sex: Male
  Weight: 142.65 kg

DRUGS (1)
  1. PERFLUTREN LIPID SOLUTION [Suspect]
     Active Substance: PERFLUTREN
     Indication: ECHOCARDIOGRAM
     Dosage: ?          OTHER FREQUENCY:ONCE;?
     Route: 040
     Dates: start: 20190716, end: 20190716

REACTIONS (4)
  - Hyperhidrosis [None]
  - Nausea [None]
  - Urticaria [None]
  - Unresponsive to stimuli [None]

NARRATIVE: CASE EVENT DATE: 20190716
